FAERS Safety Report 5907666-5 (Version None)
Quarter: 2008Q4

REPORT INFORMATION
  Report Type: 
  Country: None (occurrence: None)
  Receive Date: 20081003
  Receipt Date: 19910610
  Transmission Date: 20090506
  Serious: Yes (Death)
  Sender: FDA-Public Use
  Company Number: US-ROCHE-17276

PATIENT
  Age: 88 Year
  Sex: Female

DRUGS (4)
  1. TORADOL [Suspect]
     Indication: ANALGESIA
     Route: 030
     Dates: start: 19910420, end: 19910420
  2. LANOXIN [Concomitant]
  3. SYNTHROID [Concomitant]
  4. CATAPRES [Concomitant]

REACTIONS (1)
  - DEATH [None]
